FAERS Safety Report 13050451 (Version 2)
Quarter: 2017Q1

REPORT INFORMATION
  Report Type: Spontaneous
  Country: JP (occurrence: JP)
  Receive Date: 20161221
  Receipt Date: 20170201
  Transmission Date: 20170428
  Serious: Yes (Death, Hospitalization, Other)
  Sender: FDA-Public Use
  Company Number: JP-ASTELLAS-2016US049154

PATIENT
  Age: 68 Year
  Sex: Male

DRUGS (2)
  1. TARCEVA [Suspect]
     Active Substance: ERLOTINIB HYDROCHLORIDE
     Indication: LUNG ADENOCARCINOMA
     Dosage: 150 MG, ONCE DAILY (THE FRACTIONATION DOSE FREQUENCY IS UNCERTAIN)
     Route: 048
     Dates: start: 20151027, end: 20160328
  2. MUCODYNE [Concomitant]
     Active Substance: CARBOCYSTEINE
     Indication: BRONCHITIS
     Route: 048
     Dates: start: 20160307

REACTIONS (3)
  - Diabetes insipidus [Recovering/Resolving]
  - Interstitial lung disease [Recovering/Resolving]
  - Lung adenocarcinoma [Fatal]

NARRATIVE: CASE EVENT DATE: 20160328
